FAERS Safety Report 8173300-X (Version None)
Quarter: 2012Q1

REPORT INFORMATION
  Report Type: 
  Country: None (occurrence: None)
  Receive Date: 20120229
  Receipt Date: 20120217
  Transmission Date: 20120608
  Serious: Yes (Hospitalization)
  Sender: FDA-Public Use
  Company Number: FR-SANOFI-AVENTIS-2012SA010620

PATIENT
  Age: 81 Year
  Sex: Female

DRUGS (12)
  1. LEVOTHYROXINE SODIUM [Concomitant]
     Route: 048
  2. LEVOTHYROXINE SODIUM [Concomitant]
     Dosage: DOSAGE INCREASED
     Route: 048
  3. DIGOXIN [Suspect]
     Route: 048
     Dates: start: 20110219, end: 20120113
  4. PREVISCAN [Concomitant]
     Route: 048
  5. PREVISCAN [Concomitant]
     Dosage: DOSAGE INCREASED
  6. ATORVASTATIN [Concomitant]
     Route: 048
  7. GLICLAZIDE [Concomitant]
     Route: 048
  8. LASIX [Interacting]
     Route: 048
     Dates: end: 20120113
  9. RAMIPRIL [Interacting]
     Route: 048
  10. OMEPRAZOLE [Concomitant]
     Route: 048
  11. BISOPROLOL FUMARATE [Suspect]
     Route: 048
     Dates: end: 20120113
  12. AMIODARONE HCL [Suspect]
     Route: 048
     Dates: end: 20120113

REACTIONS (7)
  - RENAL FAILURE ACUTE [None]
  - OVERDOSE [None]
  - HYPERKALAEMIA [None]
  - BRADYCARDIA [None]
  - HYPERGLYCAEMIA [None]
  - DRUG INTERACTION [None]
  - BLOOD PRESSURE DECREASED [None]
